FAERS Safety Report 20738158 (Version 10)
Quarter: 2022Q4

REPORT INFORMATION
  Report Type: Other
  Country: TR (occurrence: None)
  Receive Date: 20220422
  Receipt Date: 20221102
  Transmission Date: 20230112
  Serious: Yes (Hospitalization)
  Sender: FDA-Public Use
  Company Number: TR-ROCHE-2935496

PATIENT
  Age: 58 Year
  Sex: Female
  Weight: 72 kg

DRUGS (104)
  1. OCRELIZUMAB [Suspect]
     Active Substance: OCRELIZUMAB
     Indication: Secondary progressive multiple sclerosis
     Dosage: DOSE LAST STUDY DRUG ADMIN PRIOR AE AND SAE: 600 MG, START DATE OF MOST RECENT DOSE OF STUDY DRUG PR
     Route: 042
     Dates: start: 20190307, end: 20190307
  2. PHENIRAMINE [Concomitant]
     Active Substance: PHENIRAMINE
     Dosage: DOSE: 1 AMPULE
     Route: 042
     Dates: start: 20210910, end: 20210910
  3. PHENIRAMINE [Concomitant]
     Active Substance: PHENIRAMINE
     Dosage: 1 AMPULE
     Route: 042
     Dates: start: 20220325, end: 20220325
  4. METHYLPREDNISOLONE [Concomitant]
     Active Substance: METHYLPREDNISOLONE
     Dosage: DOT: 25/MAR/2022
     Route: 042
     Dates: start: 20210910, end: 20210910
  5. METHYLPREDNISOLONE [Concomitant]
     Active Substance: METHYLPREDNISOLONE
     Route: 042
     Dates: start: 20220325, end: 20220325
  6. ESOMEPRAZOLE [Concomitant]
     Active Substance: ESOMEPRAZOLE
     Dosage: ONCE BEFORE INFUSION
     Route: 042
     Dates: start: 20210910, end: 20210910
  7. PANTOPRAZOLE [Concomitant]
     Active Substance: PANTOPRAZOLE
     Route: 042
     Dates: start: 20220325, end: 20220325
  8. VENTOLIN [Concomitant]
     Active Substance: ALBUTEROL SULFATE
     Route: 048
     Dates: start: 20220511, end: 20220511
  9. VENTOLIN [Concomitant]
     Active Substance: ALBUTEROL SULFATE
     Dates: start: 20220512, end: 20220512
  10. VENTOLIN [Concomitant]
     Active Substance: ALBUTEROL SULFATE
     Dates: start: 20220513, end: 20220513
  11. VENTOLIN [Concomitant]
     Active Substance: ALBUTEROL SULFATE
     Dates: start: 20220514, end: 20220514
  12. VENTOLIN [Concomitant]
     Active Substance: ALBUTEROL SULFATE
     Dates: start: 20220515, end: 20220515
  13. VENTOLIN [Concomitant]
     Active Substance: ALBUTEROL SULFATE
     Dates: start: 20220516, end: 20220516
  14. ONDANSETRON HYDROCHLORIDE [Concomitant]
     Active Substance: ONDANSETRON HYDROCHLORIDE
     Route: 042
     Dates: start: 20220511, end: 20220511
  15. ONDANSETRON HYDROCHLORIDE [Concomitant]
     Active Substance: ONDANSETRON HYDROCHLORIDE
     Route: 042
     Dates: start: 20220512, end: 20220512
  16. ONDANSETRON HYDROCHLORIDE [Concomitant]
     Active Substance: ONDANSETRON HYDROCHLORIDE
     Route: 042
     Dates: start: 20220513
  17. ONDANSETRON HYDROCHLORIDE [Concomitant]
     Active Substance: ONDANSETRON HYDROCHLORIDE
     Route: 042
     Dates: start: 20220514, end: 20220514
  18. ONDANSETRON HYDROCHLORIDE [Concomitant]
     Active Substance: ONDANSETRON HYDROCHLORIDE
     Route: 042
     Dates: start: 20220515, end: 20220515
  19. ONDANSETRON HYDROCHLORIDE [Concomitant]
     Active Substance: ONDANSETRON HYDROCHLORIDE
     Route: 042
     Dates: start: 20220516, end: 20220516
  20. ONDANSETRON HYDROCHLORIDE [Concomitant]
     Active Substance: ONDANSETRON HYDROCHLORIDE
     Route: 042
     Dates: start: 20220517, end: 20220517
  21. ONDANSETRON HYDROCHLORIDE [Concomitant]
     Active Substance: ONDANSETRON HYDROCHLORIDE
     Route: 042
     Dates: start: 20220520, end: 20220520
  22. ONDANSETRON HYDROCHLORIDE [Concomitant]
     Active Substance: ONDANSETRON HYDROCHLORIDE
     Route: 042
     Dates: start: 20220831, end: 20220907
  23. HUMULIN R [Concomitant]
     Active Substance: INSULIN HUMAN
     Route: 030
     Dates: start: 20220511, end: 20220511
  24. MAXIPEN (TURKEY) [Concomitant]
     Route: 042
     Dates: start: 20220515, end: 20220515
  25. MAXIPEN (TURKEY) [Concomitant]
     Route: 042
     Dates: start: 20220516, end: 20220517
  26. MAXIPEN (TURKEY) [Concomitant]
     Route: 042
     Dates: start: 20220519, end: 20220522
  27. MAXIPEN (TURKEY) [Concomitant]
     Route: 042
     Dates: start: 20220518, end: 20220518
  28. MAXIPEN (TURKEY) [Concomitant]
     Route: 042
     Dates: start: 20220523, end: 20220523
  29. MAXIPEN (TURKEY) [Concomitant]
     Route: 042
     Dates: start: 20220821, end: 20220907
  30. KARDOZIN [Concomitant]
     Route: 048
     Dates: start: 20220515, end: 20220515
  31. KARDOZIN [Concomitant]
     Route: 048
     Dates: start: 20220516, end: 20220516
  32. KARDOZIN [Concomitant]
     Route: 048
     Dates: start: 20220517, end: 20220522
  33. AMLODIS [Concomitant]
     Route: 048
     Dates: start: 20220515, end: 20220515
  34. POTASSIUM CHLORIDE [Concomitant]
     Active Substance: POTASSIUM CHLORIDE
     Route: 042
     Dates: start: 20220517, end: 20220517
  35. POTASSIUM CHLORIDE [Concomitant]
     Active Substance: POTASSIUM CHLORIDE
     Route: 042
     Dates: start: 20220518, end: 20220518
  36. POTASSIUM CHLORIDE [Concomitant]
     Active Substance: POTASSIUM CHLORIDE
     Route: 042
     Dates: start: 20220519, end: 20220519
  37. POTASSIUM CHLORIDE [Concomitant]
     Active Substance: POTASSIUM CHLORIDE
     Route: 042
     Dates: start: 20220521, end: 20220521
  38. POTASSIUM CHLORIDE [Concomitant]
     Active Substance: POTASSIUM CHLORIDE
     Route: 042
     Dates: start: 20220522, end: 20220522
  39. CALCILES [Concomitant]
     Route: 042
     Dates: start: 20220521, end: 20220522
  40. LIORESAL [Concomitant]
     Active Substance: BACLOFEN
     Route: 048
     Dates: start: 20220522, end: 20220522
  41. MAGNESIUM SULFATE [Concomitant]
     Active Substance: MAGNESIUM SULFATE
     Route: 042
     Dates: start: 20220523, end: 20220523
  42. INVANZ [Concomitant]
     Active Substance: ERTAPENEM SODIUM
     Route: 042
     Dates: start: 20220511, end: 20220514
  43. ULCEZOL (TURKEY) [Concomitant]
     Indication: Adverse event
     Route: 042
     Dates: start: 20220511, end: 20220522
  44. ULCEZOL (TURKEY) [Concomitant]
     Route: 042
     Dates: start: 20220731, end: 20220809
  45. ULCEZOL (TURKEY) [Concomitant]
     Route: 042
     Dates: start: 20220821, end: 20220826
  46. ULCEZOL (TURKEY) [Concomitant]
     Route: 042
     Dates: start: 20220901, end: 20220907
  47. SPAZMOL [Concomitant]
     Route: 042
     Dates: start: 20220511, end: 20220511
  48. SPAZMOL [Concomitant]
     Route: 042
     Dates: start: 20220512, end: 20220513
  49. SPAZMOL [Concomitant]
     Route: 042
     Dates: start: 20220514, end: 20220514
  50. SPAZMOL [Concomitant]
     Route: 042
     Dates: start: 20220515, end: 20220515
  51. SPAZMOL [Concomitant]
     Route: 042
     Dates: start: 20220516, end: 20220516
  52. SPAZMOL [Concomitant]
     Route: 042
     Dates: start: 20220517, end: 20220518
  53. SPAZMOL [Concomitant]
     Route: 042
     Dates: start: 20220519, end: 20220519
  54. SPAZMOL [Concomitant]
     Route: 042
     Dates: start: 20220520, end: 20220520
  55. SPAZMOL [Concomitant]
     Route: 042
     Dates: start: 20220522, end: 20220522
  56. COMBIVENT [Concomitant]
     Active Substance: ALBUTEROL SULFATE\IPRATROPIUM BROMIDE
     Indication: Adverse event
     Route: 045
     Dates: start: 20220731, end: 20220731
  57. CALCIOSEL [Concomitant]
     Indication: Adverse event
     Route: 042
     Dates: start: 20220731, end: 20220731
  58. PAROL [Concomitant]
     Active Substance: ACETAMINOPHEN
     Indication: Adverse event
     Route: 042
     Dates: start: 20220731, end: 20220731
  59. METOCLOPRAMIDE [Concomitant]
     Active Substance: METOCLOPRAMIDE
     Indication: Adverse event
     Route: 042
     Dates: start: 20220731, end: 20220731
  60. INFEX (TURKEY) [Concomitant]
     Indication: Adverse event
     Route: 048
     Dates: start: 20211007, end: 20211017
  61. INFEX (TURKEY) [Concomitant]
     Dosage: 03/AUG/2022/22/AUG/2022
     Route: 048
     Dates: start: 20220404, end: 20220420
  62. INFEX (TURKEY) [Concomitant]
     Route: 048
     Dates: start: 20220803, end: 20220822
  63. CYANOCOBALAMIN [Concomitant]
     Active Substance: CYANOCOBALAMIN
     Indication: Adverse event
     Route: 030
     Dates: start: 20220404
  64. AMIKACIN SULFATE [Concomitant]
     Active Substance: AMIKACIN SULFATE
     Indication: Adverse event
     Route: 030
     Dates: start: 20220722, end: 20220730
  65. MONUROL [Concomitant]
     Active Substance: FOSFOMYCIN TROMETHAMINE
     Indication: Adverse event
     Route: 048
     Dates: start: 20220404, end: 20220420
  66. NORMOLOL [Concomitant]
     Indication: Adverse event
     Route: 042
     Dates: start: 20220809, end: 20220809
  67. NORMOLOL [Concomitant]
     Route: 042
     Dates: start: 20220809, end: 20220809
  68. TEGRETOL [Concomitant]
     Active Substance: CARBAMAZEPINE
     Indication: Adverse event
     Route: 048
     Dates: start: 20220809, end: 20220809
  69. TEGRETOL [Concomitant]
     Active Substance: CARBAMAZEPINE
     Route: 048
     Dates: start: 20220805, end: 20220805
  70. TEGRETOL [Concomitant]
     Active Substance: CARBAMAZEPINE
     Route: 048
     Dates: start: 20220806, end: 20220806
  71. TEGRETOL [Concomitant]
     Active Substance: CARBAMAZEPINE
     Route: 048
     Dates: start: 20220807, end: 20220810
  72. NEPITIN [Concomitant]
     Indication: Adverse event
     Route: 048
     Dates: start: 20220809, end: 20220809
  73. NEPITIN [Concomitant]
     Route: 048
     Dates: start: 20220806, end: 20220807
  74. NEPITIN [Concomitant]
     Route: 048
     Dates: start: 20220809, end: 20220810
  75. FOSIT [Concomitant]
     Indication: Adverse event
     Route: 042
     Dates: start: 20220809, end: 20220809
  76. FOSIT [Concomitant]
     Route: 042
     Dates: start: 20220731, end: 20220807
  77. FOSIT [Concomitant]
     Route: 042
     Dates: start: 20220808, end: 20220808
  78. FOSIT [Concomitant]
     Route: 042
     Dates: start: 20220809, end: 20220809
  79. FOSIT [Concomitant]
     Route: 042
     Dates: start: 20220810, end: 20220810
  80. FOSIT [Concomitant]
     Route: 042
     Dates: start: 20220831, end: 20220907
  81. METOPROLOL [Concomitant]
     Active Substance: METOPROLOL
     Indication: Adverse event
     Route: 048
     Dates: start: 20220809, end: 20220809
  82. METOPROLOL [Concomitant]
     Active Substance: METOPROLOL
     Route: 048
     Dates: start: 20220809, end: 20220810
  83. FUROMIDE [Concomitant]
     Indication: Adverse event
     Route: 042
     Dates: start: 20220801, end: 20220803
  84. OKSAPAR [Concomitant]
     Route: 030
     Dates: start: 20211005, end: 20211006
  85. OKSAPAR [Concomitant]
     Route: 042
     Dates: start: 20220511, end: 20220522
  86. OKSAPAR [Concomitant]
     Route: 042
     Dates: start: 20220803, end: 20220809
  87. OKSAPAR [Concomitant]
     Route: 042
     Dates: start: 20220829, end: 20220907
  88. NORLOPIN [Concomitant]
     Route: 048
     Dates: start: 20220804, end: 20220809
  89. POLGYL [Concomitant]
     Indication: Adverse event
     Route: 042
     Dates: start: 20220807, end: 20220808
  90. POLGYL [Concomitant]
     Route: 042
     Dates: start: 20220809, end: 20220809
  91. DOENZA [Concomitant]
     Indication: Adverse event
     Route: 048
     Dates: start: 20220807, end: 20220807
  92. CORTAIR [Concomitant]
     Indication: Adverse event
     Route: 045
     Dates: start: 20220821, end: 20220821
  93. CORTAIR [Concomitant]
     Route: 045
     Dates: start: 20220823, end: 20220823
  94. CORTAIR [Concomitant]
     Route: 045
     Dates: start: 20220825, end: 20220825
  95. CORTAIR [Concomitant]
     Route: 045
     Dates: start: 20220826, end: 20220826
  96. CORTAIR [Concomitant]
     Route: 045
     Dates: start: 20220827, end: 20220827
  97. IPRAVENT (TURKEY) [Concomitant]
     Indication: Adverse event
     Route: 055
     Dates: start: 20220821, end: 20220831
  98. POLIX [Concomitant]
     Indication: Adverse event
     Route: 042
     Dates: start: 20220821, end: 20220829
  99. POLIX [Concomitant]
     Route: 042
     Dates: start: 20220830, end: 20220831
  100. TODAVIT [Concomitant]
     Indication: Adverse event
     Dosage: 1 AMPULE
     Route: 042
     Dates: start: 20220823, end: 20220825
  101. FLUKOPOL [Concomitant]
     Indication: Adverse event
     Route: 042
     Dates: start: 20220824, end: 20220825
  102. ISOCONAZOLE NITRATE [Concomitant]
     Active Substance: ISOCONAZOLE NITRATE
     Indication: Adverse event
     Route: 061
     Dates: start: 20220903, end: 20220903
  103. GYREX (TURKEY) [Concomitant]
     Indication: Adverse event
     Route: 048
     Dates: start: 20220903, end: 20220904
  104. COLEDAN-D3 [Concomitant]
     Route: 048
     Dates: start: 20220404, end: 20220404

REACTIONS (5)
  - Urinary tract infection [Recovered/Resolved]
  - Vitamin B12 deficiency [Recovering/Resolving]
  - Vitamin D deficiency [Recovering/Resolving]
  - Urinary tract infection [Recovering/Resolving]
  - Acute kidney injury [Recovering/Resolving]

NARRATIVE: CASE EVENT DATE: 20211005
